FAERS Safety Report 5751485-X (Version None)
Quarter: 2008Q2

REPORT INFORMATION
  Report Type: 
  Country: None (occurrence: None)
  Receive Date: 20080527
  Receipt Date: 20080512
  Transmission Date: 20081010
  Serious: Yes (Death)
  Sender: FDA-Public Use
  Company Number: 2008BI012725

PATIENT
  Sex: Male

DRUGS (1)
  1. AVONEX [Suspect]
     Dates: start: 19980201, end: 19980901

REACTIONS (1)
  - DEATH [None]
